FAERS Safety Report 8530777-5 (Version None)
Quarter: 2012Q2

REPORT INFORMATION
  Report Type: 
  Country: None (occurrence: None)
  Receive Date: 20120411
  Receipt Date: 20120313
  Transmission Date: 20120825
  Serious: No
  Sender: FDA-Public Use
  Company Number: PHEH2012US005829

PATIENT
  Age: 65 Year
  Sex: Female
  Weight: 97.5 kg

DRUGS (11)
  1. ILARIS [Suspect]
     Indication: FAMILIAL COLD AUTOINFLAMMATORY SYNDROME
     Dosage: 150 MG, SUBCUTANEOUS
     Route: 058
     Dates: start: 20091101
  2. LANSOPRAZOLE [Concomitant]
  3. PRAVASTATIN [Concomitant]
  4. CALCIUM CARBONATE [Concomitant]
  5. FORTICAL [Concomitant]
  6. ASPIRIN [Concomitant]
  7. THYROID TAB [Concomitant]
  8. FEXOFENADINE [Concomitant]
  9. MAGNESIUM (MAGNESIUM) [Concomitant]
  10. METOPROLOL TARTRATE [Concomitant]
  11. AMBIEN [Concomitant]

REACTIONS (4)
  - FEELING ABNORMAL [None]
  - MYALGIA [None]
  - ARTHRALGIA [None]
  - INFLUENZA LIKE ILLNESS [None]
